FAERS Safety Report 5675880-2 (Version None)
Quarter: 2008Q1

REPORT INFORMATION
  Report Type: 
  Country: None (occurrence: None)
  Receive Date: 20080321
  Receipt Date: 20080307
  Transmission Date: 20080703
  Serious: Yes (Hospitalization, Congenital Anomaly)
  Sender: FDA-Public Use
  Company Number: A0662887A

PATIENT
  Sex: Female
  Weight: 4 kg

DRUGS (4)
  1. PAXIL [Suspect]
     Indication: DEPRESSION
     Dates: start: 20040101, end: 20050101
  2. PAXIL CR [Suspect]
     Indication: DRUG USE FOR UNKNOWN INDICATION
  3. VITAMIN TAB [Concomitant]
  4. IRON SUPPLEMENT [Concomitant]

REACTIONS (41)
  - ANAEMIA [None]
  - ANOXIC ENCEPHALOPATHY [None]
  - ATRIAL SEPTAL DEFECT [None]
  - CARDIAC DISORDER [None]
  - CARDIOGENIC SHOCK [None]
  - CARDIOPULMONARY FAILURE [None]
  - CEREBRAL HAEMORRHAGE [None]
  - CEREBRAL VENTRICLE DILATATION [None]
  - CLOSTRIDIAL INFECTION [None]
  - CONVULSION NEONATAL [None]
  - CYANOSIS [None]
  - DEVELOPMENTAL DELAY [None]
  - DRUG EXPOSURE DURING PREGNANCY [None]
  - ENTEROBACTER SEPSIS [None]
  - FLUID OVERLOAD [None]
  - FOETAL HEART RATE ABNORMAL [None]
  - FOETAL MOVEMENTS DECREASED [None]
  - GASTROOESOPHAGEAL REFLUX DISEASE [None]
  - HEART DISEASE CONGENITAL [None]
  - HEART RATE DECREASED [None]
  - HYDROCEPHALUS [None]
  - HYPERNATRAEMIA [None]
  - HYPERTENSION [None]
  - HYPOTENSION [None]
  - HYPOTHYROIDISM [None]
  - LYMPHOPENIA [None]
  - MEDIASTINAL HAEMORRHAGE [None]
  - METABOLIC ACIDOSIS [None]
  - NEPHROCALCINOSIS [None]
  - OEDEMA [None]
  - OPTIC NERVE HYPOPLASIA [None]
  - PATENT DUCTUS ARTERIOSUS [None]
  - PERITONITIS [None]
  - PULMONARY HAEMORRHAGE [None]
  - RENAL FAILURE [None]
  - RENAL NECROSIS [None]
  - SEPSIS [None]
  - SKIN DISCOLOURATION [None]
  - SUBDURAL HAEMATOMA [None]
  - TRANSPOSITION OF THE GREAT VESSELS [None]
  - VENTRICULAR DYSFUNCTION [None]
